FAERS Safety Report 7669887-3 (Version None)
Quarter: 2011Q3

REPORT INFORMATION
  Report Type: 
  Country: None (occurrence: None)
  Receive Date: 20110808
  Receipt Date: 20110728
  Transmission Date: 20111222
  Serious: Yes (Hospitalization)
  Sender: FDA-Public Use
  Company Number: US-JNJFOC-20110800931

PATIENT
  Sex: Male
  Weight: 114.6 kg

DRUGS (6)
  1. REMICADE [Suspect]
     Indication: INFLAMMATORY BOWEL DISEASE
     Route: 042
     Dates: start: 20100319
  2. PREVACID [Concomitant]
  3. MULTI-VITAMINS [Concomitant]
  4. URSODIOL [Concomitant]
  5. ANTIBIOTICS [Concomitant]
     Indication: INFLAMMATORY BOWEL DISEASE
  6. LEXAPRO [Concomitant]

REACTIONS (1)
  - CROHN'S DISEASE [None]
